FAERS Safety Report 7321216-0 (Version None)
Quarter: 2011Q1

REPORT INFORMATION
  Report Type: 
  Country: None (occurrence: None)
  Receive Date: 20110228
  Receipt Date: 20110224
  Transmission Date: 20110831
  Serious: Yes (Life-Threatening, Hospitalization, Other)
  Sender: FDA-Public Use
  Company Number: IE-ABBOTT-11P-229-0702458-00

PATIENT
  Sex: Female

DRUGS (46)
  1. BEESWAX WHITE, CALCIUM CARBONATE, CARMINE, CARNAUBA WAX (E903) [Concomitant]
     Indication: PRODUCT USED FOR UNKNOWN INDICATION
  2. POLYVINYL ACETATE PHTHALATE [Concomitant]
     Indication: PRODUCT USED FOR UNKNOWN INDICATION
  3. COLLOIDAL [Concomitant]
     Indication: PRODUCT USED FOR UNKNOWN INDICATION
  4. SODIUM BICARBONATE [Concomitant]
     Indication: PRODUCT USED FOR UNKNOWN INDICATION
  5. AMLODIPINE BESYLATE [Concomitant]
     Indication: PRODUCT USED FOR UNKNOWN INDICATION
  6. ELTROXIN [Concomitant]
     Indication: HYPOTHYROIDISM
  7. DISODIUM PHOSPHATE DIHYDRATE [Suspect]
     Indication: PRODUCT USED FOR UNKNOWN INDICATION
  8. DELTACORTRIL ENTERIC [Concomitant]
     Indication: PRODUCT USED FOR UNKNOWN INDICATION
     Route: 048
     Dates: start: 20100603
  9. INDIGO CARMINE ALUMINIUM LAKE FD+C BLUE NO.2 (E132) [Concomitant]
     Indication: PRODUCT USED FOR UNKNOWN INDICATION
  10. LACTOSE ANHYDROUS [Concomitant]
     Indication: PRODUCT USED FOR UNKNOWN INDICATION
  11. SODIUM ALGINATE [Concomitant]
     Indication: PRODUCT USED FOR UNKNOWN INDICATION
  12. METHOTREXATE [Concomitant]
     Indication: ARTHRITIS
     Route: 048
     Dates: start: 20080301
  13. HUMIRA [Suspect]
     Indication: POLYARTHRITIS
     Route: 058
     Dates: start: 20080101, end: 20081001
  14. HUMIRA [Suspect]
     Indication: COLITIS ULCERATIVE
     Route: 058
     Dates: start: 20081001, end: 20110101
  15. LECITHIN [Concomitant]
     Indication: PRODUCT USED FOR UNKNOWN INDICATION
  16. POLYSORBATE 20 [Concomitant]
     Indication: PRODUCT USED FOR UNKNOWN INDICATION
  17. SODIUM CARBOXYLMETHYL CELLULOSE [Concomitant]
     Indication: PRODUCT USED FOR UNKNOWN INDICATION
  18. MAGNESIUM STEARATE [Concomitant]
  19. POLYSORBATE 80 [Suspect]
     Indication: PRODUCT USED FOR UNKNOWN INDICATION
  20. STEARIC ACID [Concomitant]
     Indication: PRODUCT USED FOR UNKNOWN INDICATION
  21. TITANIUM DIOXIDE [Concomitant]
     Indication: PRODUCT USED FOR UNKNOWN INDICATION
  22. MACROGOL 4000 [Concomitant]
     Indication: PRODUCT USED FOR UNKNOWN INDICATION
  23. TRIETHYL CITRATE [Concomitant]
     Indication: PRODUCT USED FOR UNKNOWN INDICATION
  24. XANTHAN GUM (E145) [Concomitant]
     Indication: PRODUCT USED FOR UNKNOWN INDICATION
  25. HUMIRA [Suspect]
     Indication: SERONEGATIVE ARTHRITIS
  26. CITRIC ACID MONOHYDRATE [Suspect]
     Indication: PRODUCT USED FOR UNKNOWN INDICATION
  27. SODIUM DIHYDROGEN PHOSPHATE DIHYDRATE [Suspect]
     Indication: PRODUCT USED FOR UNKNOWN INDICATION
  28. MAIZE STARCH [Concomitant]
     Indication: PRODUCT USED FOR UNKNOWN INDICATION
  29. SORBIC ACID [Concomitant]
     Indication: PRODUCT USED FOR UNKNOWN INDICATION
  30. MANNITOL [Suspect]
     Indication: PRODUCT USED FOR UNKNOWN INDICATION
  31. SODIUM CHLORIDE [Suspect]
     Indication: PRODUCT USED FOR UNKNOWN INDICATION
  32. SODIUM CITRATE [Suspect]
     Indication: PRODUCT USED FOR UNKNOWN INDICATION
  33. SODIUM HYDROXIDE [Suspect]
     Indication: PRODUCT USED FOR UNKNOWN INDICATION
  34. WATER FOR INJECTION [Suspect]
     Indication: PRODUCT USED FOR UNKNOWN INDICATION
  35. LACTOSE MONOHYDRATE PH.EUR [Concomitant]
     Indication: PRODUCT USED FOR UNKNOWN INDICATION
  36. PREDNISOLONE [Concomitant]
     Indication: PRODUCT USED FOR UNKNOWN INDICATION
  37. CALCIUM PHOSPHATE DIBASIC [Concomitant]
     Indication: PRODUCT USED FOR UNKNOWN INDICATION
  38. CELLULOSE MICROCRYSTALLINE [Concomitant]
     Indication: PRODUCT USED FOR UNKNOWN INDICATION
  39. SODIUM STARCH GLYCOLLATE [Concomitant]
     Indication: PRODUCT USED FOR UNKNOWN INDICATION
  40. MAGNESIUM STEARATE [Concomitant]
     Indication: PRODUCT USED FOR UNKNOWN INDICATION
  41. METHYLCELLULOSE [Concomitant]
     Indication: PRODUCT USED FOR UNKNOWN INDICATION
  42. OPAGLOS [Concomitant]
     Indication: PRODUCT USED FOR UNKNOWN INDICATION
  43. POLYVINYL ALCOHOL [Concomitant]
     Indication: PRODUCT USED FOR UNKNOWN INDICATION
  44. PURIFIED TALC [Concomitant]
     Indication: PRODUCT USED FOR UNKNOWN INDICATION
  45. SILICON DIOXIDE [Concomitant]
     Indication: PRODUCT USED FOR UNKNOWN INDICATION
  46. ISTIN [Concomitant]
     Indication: HYPERTENSION
     Route: 048
     Dates: start: 20100620

REACTIONS (11)
  - VOMITING [None]
  - HEPATIC NEOPLASM MALIGNANT [None]
  - GASTROINTESTINAL CANCER METASTATIC [None]
  - INTESTINAL STENOSIS [None]
  - UTERINE CYST [None]
  - ASCITES [None]
  - LIVER DISORDER [None]
  - GAMMA-GLUTAMYLTRANSFERASE ABNORMAL [None]
  - NODULE [None]
  - NAUSEA [None]
  - METASTASES TO LIVER [None]
